FAERS Safety Report 8793119 (Version 1)
Quarter: 2012Q4

REPORT INFORMATION
  Report Type: 
  Country: US (occurrence: US)
  Receive Date: 20120918
  Receipt Date: 20120918
  Transmission Date: 20130627
  Serious: No
  Sender: FDA-Public Use
  Company Number: US-ASTRAZENECA-2012SE69177

PATIENT
  Age: 59 Year
  Sex: Female
  Weight: 70.3 kg

DRUGS (7)
  1. NEXIUM [Suspect]
     Indication: GASTROOESOPHAGEAL REFLUX DISEASE
     Route: 048
     Dates: end: 201105
  2. NEXIUM [Suspect]
     Indication: OESOPHAGEAL SPASM
     Route: 048
     Dates: end: 201105
  3. NEXIUM [Suspect]
     Indication: GASTROOESOPHAGEAL REFLUX DISEASE
     Route: 048
     Dates: start: 201105
  4. NEXIUM [Suspect]
     Indication: OESOPHAGEAL SPASM
     Route: 048
     Dates: start: 201105
  5. ACIPHEX [Concomitant]
  6. DEXILANT [Concomitant]
  7. PROTON PUMP INHIBITORS [Concomitant]

REACTIONS (2)
  - Gastrooesophageal reflux disease [Unknown]
  - Off label use [Unknown]
